FAERS Safety Report 8435451-1 (Version None)
Quarter: 2012Q2

REPORT INFORMATION
  Report Type: 
  Country: None (occurrence: None)
  Receive Date: 20120614
  Receipt Date: 20120606
  Transmission Date: 20120825
  Serious: Yes (Hospitalization)
  Sender: FDA-Public Use
  Company Number: US-BAYER-2012-057528

PATIENT
  Age: 43 Year
  Sex: Female
  Weight: 101.13 kg

DRUGS (7)
  1. YAZ [Suspect]
     Indication: CONTRACEPTION
     Dosage: UNK
     Dates: start: 20090312, end: 20100513
  2. HYDROCODONE BITARTRATE AND ACETAMINOPHEN [Concomitant]
     Dosage: 5-500 MILLIGRAM
     Route: 048
  3. LOVENOX [Concomitant]
     Indication: THROMBOSIS PROPHYLAXIS
  4. ZOCOR [Concomitant]
     Dosage: 20 MG, HS
  5. ASPIRIN [Concomitant]
     Indication: THROMBOSIS PROPHYLAXIS
     Dosage: 325 MG, UNK
  6. FLEXERIL [Concomitant]
     Dosage: 10 MG, PRN
     Route: 048
  7. DROSPIRENONE AND ETHINYL ESTRADIOL [Suspect]
     Indication: CONTRACEPTION
     Dosage: UNK
     Dates: start: 20100610, end: 20101117

REACTIONS (6)
  - HYPOAESTHESIA [None]
  - TRANSIENT ISCHAEMIC ATTACK [None]
  - CONFUSIONAL STATE [None]
  - COGNITIVE DISORDER [None]
  - VIITH NERVE PARALYSIS [None]
  - NEUROLOGICAL EXAMINATION ABNORMAL [None]
